FAERS Safety Report 13153244 (Version 1)
Quarter: 2017Q1

REPORT INFORMATION
  Report Type: Spontaneous
  Country: JP (occurrence: JP)
  Receive Date: 20170126
  Receipt Date: 20170126
  Transmission Date: 20170428
  Serious: Yes (Other)
  Sender: FDA-Public Use
  Company Number: JP-AMGEN-JPNSP2017012906

PATIENT
  Age: 85 Year

DRUGS (5)
  1. REGPARA [Suspect]
     Active Substance: CINACALCET HYDROCHLORIDE
     Dosage: 21 MG, QD
     Route: 048
     Dates: start: 20160816, end: 20160822
  2. REGPARA [Suspect]
     Active Substance: CINACALCET HYDROCHLORIDE
     Dosage: 25 MG, QD
     Route: 048
     Dates: start: 20160726, end: 20160815
  3. REGPARA [Suspect]
     Active Substance: CINACALCET HYDROCHLORIDE
     Dosage: 21 MG, QD
     Route: 048
     Dates: start: 20160719, end: 20160725
  4. REGPARA [Suspect]
     Active Substance: CINACALCET HYDROCHLORIDE
     Indication: PRODUCT USED FOR UNKNOWN INDICATION
     Dosage: 25 MG, QD
     Route: 048
     Dates: start: 20160223, end: 20160718
  5. REGPARA [Suspect]
     Active Substance: CINACALCET HYDROCHLORIDE
     Dosage: 25 MG, QD
     Route: 048
     Dates: start: 20160823, end: 20160919

REACTIONS (4)
  - Conjunctivitis [Not Recovered/Not Resolved]
  - Nasopharyngitis [Recovered/Resolved]
  - Arthralgia [Not Recovered/Not Resolved]
  - Electrocardiogram QT prolonged [Recovered/Resolved]

NARRATIVE: CASE EVENT DATE: 20160315
